FAERS Safety Report 9522331 (Version 1)
Quarter: 2013Q3

REPORT INFORMATION
  Report Type: Spontaneous
  Country: US (occurrence: US)
  Receive Date: 20130913
  Receipt Date: 20130913
  Transmission Date: 20140515
  Serious: No
  Sender: FDA-Public Use
  Company Number: US-TEVA-432335USA

PATIENT
  Sex: Female

DRUGS (2)
  1. PLAN B ONE-STEP [Suspect]
     Indication: POST COITAL CONTRACEPTION
     Dosage: 1.5 GRAM DAILY;
     Route: 048
     Dates: start: 20130827, end: 20130827
  2. PLAN B ONE-STEP [Suspect]
     Dosage: 1.5 GRAM DAILY;
     Route: 048
     Dates: start: 20130827, end: 20130827

REACTIONS (2)
  - Menstruation irregular [Recovered/Resolved]
  - Inappropriate schedule of drug administration [Unknown]
